FAERS Safety Report 8053823-4 (Version None)
Quarter: 2012Q1

REPORT INFORMATION
  Report Type: 
  Country: None (occurrence: None)
  Receive Date: 20120118
  Receipt Date: 20120111
  Transmission Date: 20120608
  Serious: Yes (Hospitalization)
  Sender: FDA-Public Use
  Company Number: BR-ABBOTT-11P-020-0879499-00

PATIENT
  Sex: Female

DRUGS (9)
  1. SCOPOLAMINE [Concomitant]
     Indication: PAIN
     Route: 048
  2. HUMIRA [Suspect]
     Indication: CROHN'S DISEASE
     Dates: start: 20110401
  3. LUFTAL [Concomitant]
     Indication: FLATULENCE
     Route: 048
  4. ANADOR [Concomitant]
     Indication: PAIN
     Dosage: 1 TAB Q6-8H PRN
     Route: 048
  5. SCOPOLAMINE [Concomitant]
     Indication: ABDOMINAL PAIN
  6. MESALAMINE [Concomitant]
     Indication: CROHN'S DISEASE
     Route: 048
  7. ACETAMINOPHEN [Concomitant]
     Indication: HEADACHE
     Dosage: 3 TO 4 TIMES A DAY
  8. ATROVERAN [Concomitant]
     Indication: PAIN
     Route: 048
  9. HUMIRA [Suspect]

REACTIONS (7)
  - NEPHROLITHIASIS [None]
  - WEIGHT INCREASED [None]
  - RENAL DISORDER [None]
  - NERVOUSNESS [None]
  - RENAL COLIC [None]
  - URINARY TRACT INFECTION [None]
  - NERVOUS SYSTEM DISORDER [None]
